FAERS Safety Report 19110236 (Version 1)
Quarter: 2021Q2

REPORT INFORMATION
  Report Type: Spontaneous
  Country: US (occurrence: US)
  Receive Date: 20210408
  Receipt Date: 20210408
  Transmission Date: 20210717
  Serious: No
  Sender: FDA-Public Use
  Company Number: US-MYLANLABS-2021M1019380

PATIENT
  Sex: Female

DRUGS (1)
  1. FENTANYL TRANSDERMAL SYSTEM [Suspect]
     Active Substance: FENTANYL
     Indication: BACK PAIN
     Dosage: 62.5 MCG, Q3D (1 PATCH EVERY 72 HOURS)
     Route: 062
     Dates: start: 202008

REACTIONS (3)
  - Product quality issue [Not Recovered/Not Resolved]
  - Product use issue [Not Recovered/Not Resolved]
  - Product adhesion issue [Not Recovered/Not Resolved]
